FAERS Safety Report 9383172 (Version 1)
Quarter: 2013Q3

REPORT INFORMATION
  Report Type: Spontaneous
  Country: GB (occurrence: GB)
  Receive Date: 20130704
  Receipt Date: 20130704
  Transmission Date: 20140515
  Serious: Yes (Death)
  Sender: FDA-Public Use
  Company Number: GB-RANBAXY-2013R1-70687

PATIENT
  Age: 46 Year
  Sex: Male
  Weight: 111.9 kg

DRUGS (5)
  1. SERTRALINE [Suspect]
     Indication: DEPRESSION
     Dosage: 200 MG, QD
     Route: 048
     Dates: start: 2000
  2. ZAPONEX [Suspect]
     Indication: SCHIZOPHRENIA, PARANOID TYPE
     Dosage: 300 MG, BID
     Route: 048
     Dates: start: 20090626, end: 20121116
  3. AMISULPRIDE [Concomitant]
     Indication: PRODUCT USED FOR UNKNOWN INDICATION
     Dosage: 800 MG, QD
     Route: 048
     Dates: start: 2005
  4. SIMVASTATIN [Concomitant]
     Indication: HYPERCHOLESTEROLAEMIA
     Dosage: 40 MG, QD
     Route: 048
     Dates: start: 2005
  5. VALPROATE SODIUM [Concomitant]
     Indication: CONVULSION
     Dosage: 600 MG, QD
     Route: 048
     Dates: start: 2000

REACTIONS (5)
  - Arteriosclerosis coronary artery [Not Recovered/Not Resolved]
  - Drowning [Fatal]
  - Intentional overdose [Fatal]
  - Emphysema [Not Recovered/Not Resolved]
  - Completed suicide [Fatal]
